FAERS Safety Report 5527978-7 (Version None)
Quarter: 2007Q4

REPORT INFORMATION
  Report Type: 
  Country: None (occurrence: None)
  Receive Date: 20071128
  Receipt Date: 20071119
  Transmission Date: 20080405
  Serious: Yes (Hospitalization)
  Sender: FDA-Public Use
  Company Number: FR-BAXTER-2007BH009223

PATIENT
  Age: 76 Year
  Sex: Female

DRUGS (8)
  1. SUPRANE [Suspect]
     Indication: SURGERY
     Route: 065
     Dates: start: 20070521, end: 20070521
  2. ACUPAN [Suspect]
     Indication: SURGERY
     Route: 065
     Dates: start: 20070521, end: 20070521
  3. SUFENTA [Suspect]
     Indication: SURGERY
     Route: 065
     Dates: start: 20070521, end: 20070521
  4. PROPOFOL [Suspect]
     Indication: SURGERY
     Route: 065
     Dates: start: 20070521, end: 20070521
  5. ATRACURIUM [Suspect]
     Indication: SURGERY
     Route: 065
     Dates: start: 20070521, end: 20070521
  6. EPHEDRINE [Suspect]
     Indication: SURGERY
     Route: 065
     Dates: start: 20070521, end: 20070521
  7. KEFANDOL [Suspect]
     Indication: SURGERY
     Route: 065
     Dates: start: 20070521, end: 20070521
  8. PERFALGAN [Suspect]
     Indication: SURGERY
     Route: 065
     Dates: start: 20070521, end: 20070521

REACTIONS (1)
  - CHOLESTASIS [None]
